FAERS Safety Report 5095852-9 (Version None)
Quarter: 2006Q3

REPORT INFORMATION
  Report Type: 
  Country: None (occurrence: None)
  Receive Date: 20060905
  Receipt Date: 20060828
  Transmission Date: 20061208
  Serious: Yes (Hospitalization)
  Sender: FDA-Public Use
  Company Number: PHEH2006US11053

PATIENT
  Sex: Male

DRUGS (13)
  1. EXJADE [Suspect]
     Dosage: UNK, UNK
     Route: 048
     Dates: start: 20051201
  2. REVLIMID [Suspect]
     Indication: MYELODYSPLASTIC SYNDROME
  3. TRANSFUSIONS [Suspect]
     Route: 042
  4. AMIODARONE HCL [Concomitant]
  5. BUMEX [Concomitant]
  6. POTASSIUM [Concomitant]
  7. DIGOXIN [Concomitant]
  8. COREG [Concomitant]
  9. FOLIC ACID [Concomitant]
  10. ASPIRIN [Concomitant]
  11. MULTI-VITAMIN [Concomitant]
  12. QUESTRAN [Concomitant]
  13. NEXIUM [Concomitant]

REACTIONS (6)
  - ASTHENIA [None]
  - BLOOD CREATININE INCREASED [None]
  - FAILURE TO THRIVE [None]
  - FATIGUE [None]
  - HAEMODIALYSIS [None]
  - RENAL FAILURE [None]
